FAERS Safety Report 7973105 (Version 2)
Quarter: 2014Q1

REPORT INFORMATION
  Report Type: Spontaneous
  Country: CA (occurrence: CA)
  Receive Date: 20110603
  Receipt Date: 20140204
  Transmission Date: 20141002
  Serious: Yes (Hospitalization)
  Sender: FDA-Public Use
  Company Number: CA-RANBAXY-2011US-44733

PATIENT
  Age: 16 Year
  Sex: Female

DRUGS (11)
  1. RISPERIDONE [Suspect]
     Indication: SOCIAL PHOBIA
     Dosage: 2.25 MG
     Route: 065
  2. RISPERIDONE [Suspect]
     Indication: OBSESSIVE-COMPULSIVE DISORDER
     Dosage: 4.5 MG
     Route: 065
  3. RISPERIDONE [Suspect]
     Indication: PSYCHOTIC DISORDER
  4. RISPERIDONE [Suspect]
     Indication: SOCIAL PHOBIA
     Dosage: 1 MG FOR SEVERAL DAYS AT A TIME
     Route: 065
  5. RISPERIDONE [Suspect]
     Indication: OBSESSIVE-COMPULSIVE DISORDER
  6. RISPERIDONE [Suspect]
     Indication: PSYCHOTIC DISORDER
  7. CITALOPRAM [Concomitant]
     Indication: SOCIAL PHOBIA
     Dosage: UNK
     Route: 065
  8. CITALOPRAM [Concomitant]
     Indication: OBSESSIVE-COMPULSIVE DISORDER
     Dosage: UNK
     Route: 065
  9. CITALOPRAM [Concomitant]
     Indication: PSYCHOTIC DISORDER
  10. OLANZAPINE [Concomitant]
     Indication: CONVERSION DISORDER
     Dosage: UNK
     Route: 065
  11. CLONAZEPAM [Concomitant]
     Indication: CONVERSION DISORDER
     Dosage: UNK
     Route: 065

REACTIONS (4)
  - Dystonia [Recovering/Resolving]
  - Suicidal ideation [Recovered/Resolved]
  - Anxiety [Recovering/Resolving]
  - Hallucination, auditory [Recovering/Resolving]
